FAERS Safety Report 19477435 (Version 8)
Quarter: 2024Q1

REPORT INFORMATION
  Report Type: Spontaneous
  Country: US (occurrence: US)
  Receive Date: 20210630
  Receipt Date: 20240207
  Transmission Date: 20240409
  Serious: No
  Sender: FDA-Public Use
  Company Number: US-PFIZER INC-2021476616

PATIENT
  Age: 57 Year
  Sex: Male

DRUGS (21)
  1. BRAFTOVI [Suspect]
     Active Substance: ENCORAFENIB
     Dosage: 450 MG, DAILY
     Route: 048
  2. BRAFTOVI [Suspect]
     Active Substance: ENCORAFENIB
     Dosage: 300 MG, 1X/DAY
     Route: 048
  3. BRAFTOVI [Suspect]
     Active Substance: ENCORAFENIB
     Dosage: 300 MG, 1X/DAY
     Route: 048
  4. MEKTOVI [Suspect]
     Active Substance: BINIMETINIB
     Dosage: 30 MG, 2X/DAY
     Route: 048
  5. MEKTOVI [Suspect]
     Active Substance: BINIMETINIB
     Dosage: 45 MG, DAILY (2 TABLETS (30MG) EVERY MORNING, THEN 1 TABLET (15MG) EVERY AFTERNOON/EVENING)
     Route: 048
  6. MEKTOVI [Suspect]
     Active Substance: BINIMETINIB
     Dosage: 75 MG
  7. MEKTOVI [Suspect]
     Active Substance: BINIMETINIB
     Dosage: 15 MG
  8. MEKTOVI [Suspect]
     Active Substance: BINIMETINIB
     Dosage: 45 MG, 1X/DAY
     Route: 048
  9. MEKTOVI [Suspect]
     Active Substance: BINIMETINIB
     Dosage: 30 MG, 2X/DAY
     Route: 048
  10. PREDNISONE [Concomitant]
     Active Substance: PREDNISONE
     Dosage: 150 MG 13 HOUR PREP
     Dates: start: 20221031
  11. PREDNISONE [Concomitant]
     Active Substance: PREDNISONE
     Dosage: 150 MG 13 HOUR PREP
     Dates: start: 20221103
  12. PREDNISONE [Concomitant]
     Active Substance: PREDNISONE
     Dosage: 150 MG 13 HOUR PREP
     Dates: start: 20230202
  13. PREDNISONE [Concomitant]
     Active Substance: PREDNISONE
     Dosage: 150 MG 13 HOUR PREP
     Dates: start: 20230501
  14. PREDNISONE [Concomitant]
     Active Substance: PREDNISONE
     Dosage: 150 MG 13 HOUR PREP
     Dates: start: 20230802
  15. PREDNISONE [Concomitant]
     Active Substance: PREDNISONE
     Dosage: 150 MG 13 HOUR PREP
     Dates: start: 20231030
  16. BENADRYL [Concomitant]
     Active Substance: DIPHENHYDRAMINE HYDROCHLORIDE
     Dosage: 50 MG
     Route: 048
     Dates: start: 20221031
  17. BENADRYL [Concomitant]
     Active Substance: DIPHENHYDRAMINE HYDROCHLORIDE
     Dosage: 50 MG
     Route: 048
     Dates: start: 20221103
  18. BENADRYL [Concomitant]
     Active Substance: DIPHENHYDRAMINE HYDROCHLORIDE
     Dosage: 50 MG
     Dates: start: 20230202
  19. BENADRYL [Concomitant]
     Active Substance: DIPHENHYDRAMINE HYDROCHLORIDE
     Dosage: 50 MG
     Dates: start: 20230501
  20. BENADRYL [Concomitant]
     Active Substance: DIPHENHYDRAMINE HYDROCHLORIDE
     Dosage: 50 MG
     Dates: start: 20230802
  21. BENADRYL [Concomitant]
     Active Substance: DIPHENHYDRAMINE HYDROCHLORIDE
     Dosage: 50 MG
     Dates: start: 20231030

REACTIONS (6)
  - Neoplasm progression [Unknown]
  - Liver disorder [Unknown]
  - Cardiac disorder [Unknown]
  - Pruritus [Unknown]
  - Alopecia [Unknown]
  - Off label use [Unknown]
